FAERS Safety Report 9389129 (Version 1)
Quarter: 2013Q3

REPORT INFORMATION
  Report Type: Spontaneous
  Country: US (occurrence: US)
  Receive Date: 20130708
  Receipt Date: 20130708
  Transmission Date: 20140515
  Serious: No
  Sender: FDA-Public Use
  Company Number: US-AMGEN-USASP2013040551

PATIENT
  Age: 61 Year
  Sex: Female

DRUGS (1)
  1. ENBREL [Suspect]
     Indication: RHEUMATOID ARTHRITIS
     Dosage: UNK MG/WEEK
     Route: 065
     Dates: start: 2004, end: 2006

REACTIONS (4)
  - Rhinalgia [Not Recovered/Not Resolved]
  - Nasal mucosal disorder [Not Recovered/Not Resolved]
  - Local swelling [Not Recovered/Not Resolved]
  - Sinusitis [Not Recovered/Not Resolved]
